FAERS Safety Report 24795175 (Version 14)
Quarter: 2025Q3

REPORT INFORMATION
  Report Type: Spontaneous
  Country: CA (occurrence: CA)
  Receive Date: 20241231
  Receipt Date: 20250916
  Transmission Date: 20251021
  Serious: Yes (Congenital Anomaly, Other)
  Sender: NOVARTIS
  Company Number: CA-SANDOZ-SDZ2024CA105090

PATIENT

DRUGS (347)
  1. ADALIMUMAB [Suspect]
     Active Substance: ADALIMUMAB
     Indication: Foetal exposure during pregnancy
     Route: 064
  2. ADALIMUMAB [Suspect]
     Active Substance: ADALIMUMAB
     Route: 064
  3. ADALIMUMAB [Suspect]
     Active Substance: ADALIMUMAB
     Route: 064
  4. ALENDRONIC ACID [Suspect]
     Active Substance: ALENDRONIC ACID
     Indication: Foetal exposure during pregnancy
     Route: 064
  5. ALENDRONIC ACID [Suspect]
     Active Substance: ALENDRONIC ACID
     Route: 064
  6. ALENDRONIC ACID [Suspect]
     Active Substance: ALENDRONIC ACID
     Route: 064
  7. RITUXIMAB [Suspect]
     Active Substance: RITUXIMAB
     Indication: Foetal exposure during pregnancy
     Route: 064
  8. RITUXIMAB [Suspect]
     Active Substance: RITUXIMAB
     Dosage: MATERNAL EXPOSURE DURING PREGNANCY,365 MG
     Route: 064
  9. RITUXIMAB [Suspect]
     Active Substance: RITUXIMAB
     Dosage: MATERNAL EXPOSURE DURING PREGNANCY,2000 MG, QD
     Route: 064
  10. RITUXIMAB [Suspect]
     Active Substance: RITUXIMAB
     Dosage: 2000 MG, QD MATERNAL EXPOSURE DURING PREGNANCY,2000 MG
     Route: 064
  11. RITUXIMAB [Suspect]
     Active Substance: RITUXIMAB
     Dosage: 1000 MG, BID, MATERNAL EXPOSURE DURING PREGNANCY,1000 MG, BID
     Route: 064
  12. RITUXIMAB [Suspect]
     Active Substance: RITUXIMAB
     Dosage: UNK, QD, MATERNAL EXPOSURE DURING PREGNANCY, UNK, QD
     Route: 064
  13. RITUXIMAB [Suspect]
     Active Substance: RITUXIMAB
     Route: 064
  14. RITUXIMAB [Suspect]
     Active Substance: RITUXIMAB
     Route: 064
  15. RITUXIMAB [Suspect]
     Active Substance: RITUXIMAB
     Route: 064
  16. RITUXIMAB [Suspect]
     Active Substance: RITUXIMAB
     Route: 064
  17. RITUXIMAB [Suspect]
     Active Substance: RITUXIMAB
     Route: 064
  18. RITUXIMAB [Suspect]
     Active Substance: RITUXIMAB
     Route: 064
  19. RITUXIMAB [Suspect]
     Active Substance: RITUXIMAB
     Route: 064
  20. RITUXIMAB [Suspect]
     Active Substance: RITUXIMAB
     Route: 064
  21. RITUXIMAB [Suspect]
     Active Substance: RITUXIMAB
     Route: 064
  22. RITUXIMAB [Suspect]
     Active Substance: RITUXIMAB
     Route: 064
  23. RITUXIMAB [Suspect]
     Active Substance: RITUXIMAB
     Route: 064
  24. RITUXIMAB [Suspect]
     Active Substance: RITUXIMAB
     Route: 064
  25. RITUXIMAB [Suspect]
     Active Substance: RITUXIMAB
     Route: 064
  26. RITUXIMAB [Suspect]
     Active Substance: RITUXIMAB
     Dosage: 2000 MG, QD MATERNAL EXPOSURE DURING PREGNANCY,2000 MG
     Route: 064
  27. RITUXIMAB [Suspect]
     Active Substance: RITUXIMAB
     Dosage: 1000 MG, QD
     Route: 064
  28. RITUXIMAB [Suspect]
     Active Substance: RITUXIMAB
     Route: 064
  29. RITUXIMAB [Suspect]
     Active Substance: RITUXIMAB
     Route: 064
  30. RITUXIMAB [Suspect]
     Active Substance: RITUXIMAB
     Route: 064
  31. RITUXIMAB [Suspect]
     Active Substance: RITUXIMAB
     Route: 064
  32. RITUXIMAB [Suspect]
     Active Substance: RITUXIMAB
     Route: 064
  33. RITUXIMAB [Suspect]
     Active Substance: RITUXIMAB
     Route: 064
  34. RITUXIMAB [Suspect]
     Active Substance: RITUXIMAB
     Dosage: 1000 MG, QD, (MATERNAL EXPOSURE DURING PREGNANCY)
     Route: 064
  35. RITUXIMAB [Suspect]
     Active Substance: RITUXIMAB
     Route: 064
  36. RITUXIMAB [Suspect]
     Active Substance: RITUXIMAB
     Route: 064
  37. RITUXIMAB [Suspect]
     Active Substance: RITUXIMAB
     Route: 064
  38. RITUXIMAB [Suspect]
     Active Substance: RITUXIMAB
     Route: 064
  39. RITUXIMAB [Suspect]
     Active Substance: RITUXIMAB
     Route: 064
  40. RITUXIMAB [Suspect]
     Active Substance: RITUXIMAB
     Route: 064
  41. RITUXIMAB [Suspect]
     Active Substance: RITUXIMAB
     Route: 064
  42. RITUXIMAB [Suspect]
     Active Substance: RITUXIMAB
     Route: 064
  43. CANDESARTAN CILEXETIL [Suspect]
     Active Substance: CANDESARTAN CILEXETIL
     Indication: Foetal exposure during pregnancy
     Route: 065
  44. CANDESARTAN CILEXETIL [Suspect]
     Active Substance: CANDESARTAN CILEXETIL
     Route: 065
  45. DICLOFENAC [Suspect]
     Active Substance: DICLOFENAC
     Indication: Foetal exposure during pregnancy
     Route: 064
  46. DICLOFENAC [Suspect]
     Active Substance: DICLOFENAC
     Route: 065
  47. DICLOFENAC [Suspect]
     Active Substance: DICLOFENAC
     Route: 064
  48. DICLOFENAC [Suspect]
     Active Substance: DICLOFENAC
     Route: 064
  49. DICLOFENAC POTASSIUM [Suspect]
     Active Substance: DICLOFENAC POTASSIUM
     Indication: Foetal exposure during pregnancy
     Route: 064
  50. DICLOFENAC POTASSIUM [Suspect]
     Active Substance: DICLOFENAC POTASSIUM
     Route: 064
  51. DICLOFENAC POTASSIUM [Suspect]
     Active Substance: DICLOFENAC POTASSIUM
     Route: 064
  52. DICLOFENAC POTASSIUM [Suspect]
     Active Substance: DICLOFENAC POTASSIUM
     Route: 064
  53. DICLOFENAC POTASSIUM [Suspect]
     Active Substance: DICLOFENAC POTASSIUM
     Route: 064
  54. DICLOFENAC SODIUM [Suspect]
     Active Substance: DICLOFENAC SODIUM
     Indication: Foetal exposure during pregnancy
     Route: 064
  55. DICLOFENAC SODIUM [Suspect]
     Active Substance: DICLOFENAC SODIUM
     Route: 064
  56. LEFLUNOMIDE [Suspect]
     Active Substance: LEFLUNOMIDE
     Indication: Foetal exposure during pregnancy
     Route: 064
  57. METFORMIN [Suspect]
     Active Substance: METFORMIN HYDROCHLORIDE
     Indication: Foetal exposure during pregnancy
     Route: 064
  58. OXYCODONE [Suspect]
     Active Substance: OXYCODONE
     Indication: Foetal exposure during pregnancy
     Route: 064
  59. OXYCODONE [Suspect]
     Active Substance: OXYCODONE
     Route: 064
  60. OXYCODONE [Suspect]
     Active Substance: OXYCODONE
     Route: 064
  61. OXYCODONE [Suspect]
     Active Substance: OXYCODONE
     Route: 065
  62. OXYCODONE [Suspect]
     Active Substance: OXYCODONE
     Route: 065
  63. COSENTYX [Suspect]
     Active Substance: SECUKINUMAB
     Indication: Foetal exposure during pregnancy
     Route: 064
  64. COSENTYX [Suspect]
     Active Substance: SECUKINUMAB
     Route: 064
  65. AIMOVIG [Suspect]
     Active Substance: ERENUMAB-AOOE
     Indication: Foetal exposure during pregnancy
     Route: 064
  66. AIMOVIG [Suspect]
     Active Substance: ERENUMAB-AOOE
     Route: 064
  67. MAGNESIUM CITRATE [Suspect]
     Active Substance: MAGNESIUM CITRATE
     Indication: Foetal exposure during pregnancy
     Route: 064
  68. MAGNESIUM CITRATE [Suspect]
     Active Substance: MAGNESIUM CITRATE
     Route: 064
  69. VOLTAROL [Suspect]
     Active Substance: DICLOFENAC SODIUM
     Indication: Foetal exposure during pregnancy
     Route: 064
  70. VOLTAROL [Suspect]
     Active Substance: DICLOFENAC SODIUM
     Route: 064
  71. VOLTAROL [Suspect]
     Active Substance: DICLOFENAC SODIUM
     Route: 064
  72. VOLTAREN [Suspect]
     Active Substance: DICLOFENAC SODIUM
     Indication: Foetal exposure during pregnancy
     Route: 064
  73. VOLTAREN [Suspect]
     Active Substance: DICLOFENAC SODIUM
     Route: 064
  74. VOLTAREN [Suspect]
     Active Substance: DICLOFENAC SODIUM
     Route: 064
  75. VOLTAREN [Suspect]
     Active Substance: DICLOFENAC SODIUM
     Route: 064
  76. HYRIMOZ [Suspect]
     Active Substance: ADALIMUMAB-ADAZ
     Indication: Foetal exposure during pregnancy
     Route: 064
  77. HYRIMOZ [Suspect]
     Active Substance: ADALIMUMAB-ADAZ
     Route: 064
  78. HYRIMOZ [Suspect]
     Active Substance: ADALIMUMAB-ADAZ
     Route: 064
  79. LEFLUNOMIDE [Suspect]
     Active Substance: LEFLUNOMIDE
     Indication: Foetal exposure during pregnancy
     Route: 064
  80. LEFLUNOMIDE [Suspect]
     Active Substance: LEFLUNOMIDE
     Route: 064
  81. LEFLUNOMIDE [Suspect]
     Active Substance: LEFLUNOMIDE
     Route: 064
  82. LEFLUNOMIDE [Suspect]
     Active Substance: LEFLUNOMIDE
     Route: 064
  83. LEFLUNOMIDE [Suspect]
     Active Substance: LEFLUNOMIDE
     Route: 064
  84. LEFLUNOMIDE [Suspect]
     Active Substance: LEFLUNOMIDE
     Route: 064
  85. LEFLUNOMIDE [Suspect]
     Active Substance: LEFLUNOMIDE
     Route: 064
  86. LEFLUNOMIDE [Suspect]
     Active Substance: LEFLUNOMIDE
     Route: 064
  87. LEFLUNOMIDE [Suspect]
     Active Substance: LEFLUNOMIDE
     Dosage: 10 MG, QD
     Route: 064
  88. ERENUMAB [Suspect]
     Active Substance: ERENUMAB
     Indication: Foetal exposure during pregnancy
     Route: 065
  89. CANDESARTAN [Suspect]
     Active Substance: CANDESARTAN
     Indication: Foetal exposure during pregnancy
     Route: 064
  90. ALENDRONATE SODIUM [Suspect]
     Active Substance: ALENDRONATE SODIUM
     Indication: Product used for unknown indication
     Route: 064
  91. ALENDRONATE SODIUM [Suspect]
     Active Substance: ALENDRONATE SODIUM
     Route: 064
  92. ALENDRONATE SODIUM [Suspect]
     Active Substance: ALENDRONATE SODIUM
     Route: 064
  93. OXYCODONE HYDROCHLORIDE [Suspect]
     Active Substance: OXYCODONE HYDROCHLORIDE
     Indication: Foetal exposure during pregnancy
     Route: 050
  94. ATOMOXETINE [Suspect]
     Active Substance: ATOMOXETINE
     Indication: Foetal exposure during pregnancy
     Route: 064
  95. ATOMOXETINE [Suspect]
     Active Substance: ATOMOXETINE
     Route: 064
  96. CHOLECALCIFEROL [Suspect]
     Active Substance: CHOLECALCIFEROL
     Indication: Foetal exposure during pregnancy
     Route: 064
  97. ERGOCALCIFEROL [Suspect]
     Active Substance: ERGOCALCIFEROL
     Indication: Foetal exposure during pregnancy
     Route: 064
  98. HYDROCORTISONE [Suspect]
     Active Substance: HYDROCORTISONE
     Indication: Foetal exposure during pregnancy
     Route: 064
  99. HYDROCORTISONE [Suspect]
     Active Substance: HYDROCORTISONE
     Route: 064
  100. HYDROCORTISONE [Suspect]
     Active Substance: HYDROCORTISONE
     Route: 064
  101. PHENYLEPHRINE HYDROCHLORIDE [Suspect]
     Active Substance: PHENYLEPHRINE HYDROCHLORIDE
     Indication: Foetal exposure during pregnancy
     Route: 064
  102. PHENYLEPHRINE HYDROCHLORIDE [Suspect]
     Active Substance: PHENYLEPHRINE HYDROCHLORIDE
     Route: 064
  103. VITAMIN C [Suspect]
     Active Substance: ASCORBIC ACID
     Indication: Foetal exposure during pregnancy
     Route: 064
  104. VITAMIN C [Suspect]
     Active Substance: ASCORBIC ACID
     Route: 064
  105. VITAMIN C [Suspect]
     Active Substance: ASCORBIC ACID
     Route: 064
  106. VITAMIN C [Suspect]
     Active Substance: ASCORBIC ACID
     Route: 064
  107. VITAMIN C [Suspect]
     Active Substance: ASCORBIC ACID
     Route: 064
  108. VITAMIN C [Suspect]
     Active Substance: ASCORBIC ACID
     Route: 064
  109. METHOTREXATE [Suspect]
     Active Substance: METHOTREXATE
     Indication: Foetal exposure during pregnancy
     Route: 064
  110. METHOTREXATE [Suspect]
     Active Substance: METHOTREXATE
     Route: 064
  111. METHOTREXATE [Suspect]
     Active Substance: METHOTREXATE
     Route: 064
  112. METHOTREXATE [Suspect]
     Active Substance: METHOTREXATE
     Route: 064
  113. METHOTREXATE [Suspect]
     Active Substance: METHOTREXATE
     Route: 064
  114. IMURAN [Suspect]
     Active Substance: AZATHIOPRINE
     Indication: Foetal exposure during pregnancy
     Route: 064
  115. IMURAN [Suspect]
     Active Substance: AZATHIOPRINE
     Route: 064
  116. IMURAN [Suspect]
     Active Substance: AZATHIOPRINE
     Route: 064
  117. IMURAN [Suspect]
     Active Substance: AZATHIOPRINE
     Route: 064
  118. ACETAMINOPHEN [Suspect]
     Active Substance: ACETAMINOPHEN
     Indication: Foetal exposure during pregnancy
     Route: 064
  119. ACETAMINOPHEN [Suspect]
     Active Substance: ACETAMINOPHEN
     Route: 064
  120. ACETAMINOPHEN [Suspect]
     Active Substance: ACETAMINOPHEN
     Route: 064
  121. ACETAMINOPHEN [Suspect]
     Active Substance: ACETAMINOPHEN
     Route: 064
  122. ACETAMINOPHEN [Suspect]
     Active Substance: ACETAMINOPHEN
     Route: 064
  123. ACETAMINOPHEN AND CODEINE [Suspect]
     Active Substance: ACETAMINOPHEN\CODEINE PHOSPHATE
     Indication: Foetal exposure during pregnancy
     Route: 064
  124. ACETAMINOPHEN AND CODEINE [Suspect]
     Active Substance: ACETAMINOPHEN\CODEINE PHOSPHATE
     Route: 064
  125. ACTEMRA [Suspect]
     Active Substance: TOCILIZUMAB
     Indication: Foetal exposure during pregnancy
     Route: 064
  126. ACTEMRA [Suspect]
     Active Substance: TOCILIZUMAB
     Route: 064
  127. ACTEMRA [Suspect]
     Active Substance: TOCILIZUMAB
     Route: 064
  128. ACTEMRA [Suspect]
     Active Substance: TOCILIZUMAB
     Route: 064
  129. ACTEMRA [Suspect]
     Active Substance: TOCILIZUMAB
     Route: 064
  130. ACTEMRA [Suspect]
     Active Substance: TOCILIZUMAB
     Route: 064
  131. ACTEMRA [Suspect]
     Active Substance: TOCILIZUMAB
     Route: 064
  132. ACTEMRA [Suspect]
     Active Substance: TOCILIZUMAB
     Route: 064
  133. ACTEMRA [Suspect]
     Active Substance: TOCILIZUMAB
     Route: 064
  134. ACTEMRA [Suspect]
     Active Substance: TOCILIZUMAB
     Route: 064
  135. LEFLUNOMIDE [Suspect]
     Active Substance: LEFLUNOMIDE
     Indication: Foetal exposure during pregnancy
     Route: 064
  136. LEFLUNOMIDE [Suspect]
     Active Substance: LEFLUNOMIDE
     Route: 064
  137. LEFLUNOMIDE [Suspect]
     Active Substance: LEFLUNOMIDE
     Route: 064
  138. LEFLUNOMIDE [Suspect]
     Active Substance: LEFLUNOMIDE
     Route: 064
  139. LEFLUNOMIDE [Suspect]
     Active Substance: LEFLUNOMIDE
     Route: 064
  140. LEFLUNOMIDE [Suspect]
     Active Substance: LEFLUNOMIDE
     Route: 064
  141. LEFLUNOMIDE [Suspect]
     Active Substance: LEFLUNOMIDE
     Route: 064
  142. LEFLUNOMIDE [Suspect]
     Active Substance: LEFLUNOMIDE
     Route: 064
  143. LEFLUNOMIDE [Suspect]
     Active Substance: LEFLUNOMIDE
     Route: 064
  144. LEFLUNOMIDE [Suspect]
     Active Substance: LEFLUNOMIDE
     Route: 064
  145. LEFLUNOMIDE [Suspect]
     Active Substance: LEFLUNOMIDE
     Route: 064
  146. PREDNISONE [Suspect]
     Active Substance: PREDNISONE
     Indication: Foetal exposure during pregnancy
     Route: 064
  147. PREDNISONE [Suspect]
     Active Substance: PREDNISONE
     Route: 064
  148. PREDNISONE [Suspect]
     Active Substance: PREDNISONE
     Route: 064
  149. ARAVA [Suspect]
     Active Substance: LEFLUNOMIDE
     Indication: Foetal exposure during pregnancy
     Route: 064
  150. ARAVA [Suspect]
     Active Substance: LEFLUNOMIDE
     Route: 064
  151. ARAVA [Suspect]
     Active Substance: LEFLUNOMIDE
     Route: 064
  152. ARAVA [Suspect]
     Active Substance: LEFLUNOMIDE
     Route: 064
  153. BERINERT [Suspect]
     Active Substance: HUMAN C1-ESTERASE INHIBITOR
     Indication: Foetal exposure during pregnancy
     Route: 064
  154. BERINERT [Suspect]
     Active Substance: HUMAN C1-ESTERASE INHIBITOR
     Route: 064
  155. BOTULINUM TOXIN TYPE A [Suspect]
     Active Substance: BOTULINUM TOXIN TYPE A
     Indication: Foetal exposure during pregnancy
     Route: 064
  156. BOTULINUM TOXIN TYPE A [Suspect]
     Active Substance: BOTULINUM TOXIN TYPE A
     Route: 064
  157. BOTULINUM TOXIN TYPE A [Suspect]
     Active Substance: BOTULINUM TOXIN TYPE A
     Route: 064
  158. BUTRANS [Suspect]
     Active Substance: BUPRENORPHINE
     Indication: Foetal exposure during pregnancy
     Route: 064
  159. BUTRANS [Suspect]
     Active Substance: BUPRENORPHINE
     Route: 064
  160. BUTRANS [Suspect]
     Active Substance: BUPRENORPHINE
     Route: 064
  161. BUTRANS [Suspect]
     Active Substance: BUPRENORPHINE
     Route: 064
  162. CALCIUM ASCORBATE [Suspect]
     Active Substance: CALCIUM ASCORBATE
     Indication: Foetal exposure during pregnancy
     Route: 064
  163. CALCIUM ASCORBATE [Suspect]
     Active Substance: CALCIUM ASCORBATE
     Route: 064
  164. CALCIUM CITRATE [Suspect]
     Active Substance: CALCIUM CITRATE
     Indication: Foetal exposure during pregnancy
     Route: 064
  165. CALCIUM GLUBIONATE [Suspect]
     Active Substance: CALCIUM GLUBIONATE
     Indication: Foetal exposure during pregnancy
     Route: 064
  166. CELEBREX [Suspect]
     Active Substance: CELECOXIB
     Indication: Foetal exposure during pregnancy
     Route: 064
  167. CELEBREX [Suspect]
     Active Substance: CELECOXIB
     Route: 064
  168. CELEBREX [Suspect]
     Active Substance: CELECOXIB
     Dosage: 2 DOSAGE FORM, QD
     Route: 064
  169. CELEBREX [Suspect]
     Active Substance: CELECOXIB
     Dosage: 1 DOSAGE FORM, QD
     Route: 064
  170. CELEBREX [Suspect]
     Active Substance: CELECOXIB
     Route: 064
  171. CELEBREX [Suspect]
     Active Substance: CELECOXIB
     Dosage: 2 DOSAGE FORM, QD
     Route: 064
  172. CELEBREX [Suspect]
     Active Substance: CELECOXIB
     Dosage: 1 DOSAGE FORM, QD
     Route: 064
  173. CELEBREX [Suspect]
     Active Substance: CELECOXIB
     Dosage: 1 DOSAGE FORM, QD
     Route: 064
  174. CELEBREX [Suspect]
     Active Substance: CELECOXIB
     Dosage: 2 DOSAGE FORM, QD
     Route: 064
  175. CETIRIZINE [Suspect]
     Active Substance: CETIRIZINE HYDROCHLORIDE
     Indication: Foetal exposure during pregnancy
     Route: 064
  176. CHLORHEXIDINE GLUCONATE [Suspect]
     Active Substance: CHLORHEXIDINE GLUCONATE
     Indication: Foetal exposure during pregnancy
     Route: 064
  177. CIMZIA [Suspect]
     Active Substance: CERTOLIZUMAB PEGOL
     Indication: Foetal exposure during pregnancy
     Route: 064
  178. CIMZIA [Suspect]
     Active Substance: CERTOLIZUMAB PEGOL
     Route: 064
  179. CIMZIA [Suspect]
     Active Substance: CERTOLIZUMAB PEGOL
     Route: 064
  180. CIMZIA [Suspect]
     Active Substance: CERTOLIZUMAB PEGOL
     Route: 064
  181. CORTISONE ACETATE [Suspect]
     Active Substance: CORTISONE ACETATE
     Indication: Foetal exposure during pregnancy
     Route: 064
  182. CORTISONE ACETATE [Suspect]
     Active Substance: CORTISONE ACETATE
     Route: 064
  183. CORTISONE ACETATE [Suspect]
     Active Substance: CORTISONE ACETATE
     Route: 064
  184. CORTISONE ACETATE [Suspect]
     Active Substance: CORTISONE ACETATE
     Route: 064
  185. DESOXIMETASONE [Suspect]
     Active Substance: DESOXIMETASONE
     Indication: Foetal exposure during pregnancy
     Route: 064
  186. DESOXIMETASONE [Suspect]
     Active Substance: DESOXIMETASONE
     Route: 064
  187. DESOXIMETASONE [Suspect]
     Active Substance: DESOXIMETASONE
     Route: 064
  188. DESOXIMETASONE [Suspect]
     Active Substance: DESOXIMETASONE
     Route: 064
  189. DOMPERIDONE MALEATE [Suspect]
     Active Substance: DOMPERIDONE MALEATE
     Indication: Foetal exposure during pregnancy
     Route: 064
  190. ENBREL [Suspect]
     Active Substance: ETANERCEPT
     Indication: Foetal exposure during pregnancy
     Route: 064
  191. ENBREL [Suspect]
     Active Substance: ETANERCEPT
     Dosage: 50 MG, QW
     Route: 064
  192. ENBREL [Suspect]
     Active Substance: ETANERCEPT
     Route: 064
  193. ENBREL [Suspect]
     Active Substance: ETANERCEPT
     Dosage: 50 MG, QD
     Route: 064
  194. ENBREL [Suspect]
     Active Substance: ETANERCEPT
     Route: 064
  195. ENBREL [Suspect]
     Active Substance: ETANERCEPT
     Route: 064
  196. ENBREL [Suspect]
     Active Substance: ETANERCEPT
     Route: 064
  197. FLUMETHASONE [Suspect]
     Active Substance: FLUMETHASONE
     Indication: Foetal exposure during pregnancy
     Route: 064
  198. FLUMETHASONE [Suspect]
     Active Substance: FLUMETHASONE
     Route: 064
  199. FLUMETHASONE PIVALATE [Suspect]
     Active Substance: FLUMETHASONE PIVALATE
     Indication: Foetal exposure during pregnancy
     Route: 064
  200. FLUMETHASONE PIVALATE [Suspect]
     Active Substance: FLUMETHASONE PIVALATE
     Route: 064
  201. FOLIC ACID [Suspect]
     Active Substance: FOLIC ACID
     Indication: Foetal exposure during pregnancy
     Route: 064
  202. FOLIC ACID [Suspect]
     Active Substance: FOLIC ACID
     Route: 064
  203. FOLIC ACID [Suspect]
     Active Substance: FOLIC ACID
     Route: 064
  204. FOLIC ACID [Suspect]
     Active Substance: FOLIC ACID
     Route: 064
  205. FOLIC ACID [Suspect]
     Active Substance: FOLIC ACID
     Route: 064
  206. FOLIC ACID [Suspect]
     Active Substance: FOLIC ACID
     Route: 064
  207. FOLIC ACID [Suspect]
     Active Substance: FOLIC ACID
     Route: 064
  208. FOLIC ACID [Suspect]
     Active Substance: FOLIC ACID
     Route: 064
  209. FOLIC ACID [Suspect]
     Active Substance: FOLIC ACID
     Route: 064
  210. FOLIC ACID [Suspect]
     Active Substance: FOLIC ACID
     Route: 064
  211. FOSAMAX [Suspect]
     Active Substance: ALENDRONATE SODIUM
     Indication: Foetal exposure during pregnancy
     Route: 064
  212. FOSAMAX [Suspect]
     Active Substance: ALENDRONATE SODIUM
     Route: 064
  213. FOSAMAX [Suspect]
     Active Substance: ALENDRONATE SODIUM
     Route: 064
  214. HAIR KERATIN AMINO ACIDS GOLD COMPLEX [Suspect]
     Active Substance: HAIR KERATIN AMINO ACIDS GOLD COMPLEX
     Indication: Foetal exposure during pregnancy
     Route: 064
  215. GOLD SODIUM THIOMALATE [Suspect]
     Active Substance: GOLD SODIUM THIOMALATE
     Indication: Foetal exposure during pregnancy
     Route: 064
  216. GOLD SODIUM THIOMALATE [Suspect]
     Active Substance: GOLD SODIUM THIOMALATE
     Route: 064
  217. HUMIRA [Suspect]
     Active Substance: ADALIMUMAB
     Indication: Foetal exposure during pregnancy
     Route: 064
  218. HUMIRA [Suspect]
     Active Substance: ADALIMUMAB
     Route: 064
  219. HUMIRA [Suspect]
     Active Substance: ADALIMUMAB
     Route: 064
  220. HUMIRA [Suspect]
     Active Substance: ADALIMUMAB
     Route: 064
  221. HUMIRA [Suspect]
     Active Substance: ADALIMUMAB
     Route: 064
  222. HUMIRA [Suspect]
     Active Substance: ADALIMUMAB
     Route: 064
  223. HYDROCORTISONE PROBUTATE [Suspect]
     Active Substance: HYDROCORTISONE PROBUTATE
     Indication: Foetal exposure during pregnancy
     Route: 064
  224. HYDROCORTISONE PROBUTATE [Suspect]
     Active Substance: HYDROCORTISONE PROBUTATE
     Route: 064
  225. HYDROXYCHLOROQUINE [Suspect]
     Active Substance: HYDROXYCHLOROQUINE
     Indication: Foetal exposure during pregnancy
     Route: 064
  226. HYDROXYCHLOROQUINE [Suspect]
     Active Substance: HYDROXYCHLOROQUINE
     Route: 064
  227. HYDROXYCHLOROQUINE [Suspect]
     Active Substance: HYDROXYCHLOROQUINE
     Route: 064
  228. HYDROXYCHLOROQUINE [Suspect]
     Active Substance: HYDROXYCHLOROQUINE
     Route: 064
  229. HYDROXYCHLOROQUINE [Suspect]
     Active Substance: HYDROXYCHLOROQUINE
     Route: 064
  230. HYDROXYCHLOROQUINE SULFATE [Suspect]
     Active Substance: HYDROXYCHLOROQUINE SULFATE
     Indication: Foetal exposure during pregnancy
     Route: 064
  231. INFLIXIMAB [Suspect]
     Active Substance: INFLIXIMAB
     Indication: Foetal exposure during pregnancy
     Route: 064
  232. INFLIXIMAB [Suspect]
     Active Substance: INFLIXIMAB
     Route: 064
  233. INFLIXIMAB [Suspect]
     Active Substance: INFLIXIMAB
     Route: 064
  234. INFLIXIMAB [Suspect]
     Active Substance: INFLIXIMAB
     Route: 064
  235. INFLIXIMAB [Suspect]
     Active Substance: INFLIXIMAB
     Route: 064
  236. INFLIXIMAB [Suspect]
     Active Substance: INFLIXIMAB
     Route: 064
  237. ISOPROPYL ALCOHOL [Suspect]
     Active Substance: ISOPROPYL ALCOHOL
     Indication: Foetal exposure during pregnancy
     Route: 064
  238. ISOPROPYL ALCOHOL [Suspect]
     Active Substance: ISOPROPYL ALCOHOL
     Route: 064
  239. ISOPROPYL ALCOHOL [Suspect]
     Active Substance: ISOPROPYL ALCOHOL
     Route: 064
  240. LAMICTAL [Suspect]
     Active Substance: LAMOTRIGINE
     Indication: Foetal exposure during pregnancy
     Route: 064
  241. LAMICTAL [Suspect]
     Active Substance: LAMOTRIGINE
     Route: 064
  242. LAMICTAL [Suspect]
     Active Substance: LAMOTRIGINE
     Route: 064
  243. LAMICTAL [Suspect]
     Active Substance: LAMOTRIGINE
     Route: 064
  244. METHYLPREDNISOLONE [Suspect]
     Active Substance: METHYLPREDNISOLONE
     Indication: Foetal exposure during pregnancy
     Route: 064
  245. METHYLPREDNISOLONE [Suspect]
     Active Substance: METHYLPREDNISOLONE
     Route: 064
  246. METHYLPREDNISOLONE SODIUM SUCCINATE [Suspect]
     Active Substance: METHYLPREDNISOLONE SODIUM SUCCINATE
     Indication: Foetal exposure during pregnancy
     Route: 064
  247. METHYLPREDNISOLONE SODIUM SUCCINATE [Suspect]
     Active Substance: METHYLPREDNISOLONE SODIUM SUCCINATE
     Route: 064
  248. METHYLPREDNISOLONE SODIUM SUCCINATE [Suspect]
     Active Substance: METHYLPREDNISOLONE SODIUM SUCCINATE
     Route: 064
  249. MINOCYCLINE [Suspect]
     Active Substance: MINOCYCLINE HYDROCHLORIDE
     Indication: Foetal exposure during pregnancy
     Route: 064
  250. MINOCYCLINE HYDROCHLORIDE [Suspect]
     Active Substance: MINOCYCLINE HYDROCHLORIDE
     Indication: Foetal exposure during pregnancy
     Route: 064
  251. MINOCYCLINE HYDROCHLORIDE [Suspect]
     Active Substance: MINOCYCLINE HYDROCHLORIDE
     Route: 064
  252. MYOCHRYSINE [Suspect]
     Active Substance: GOLD SODIUM THIOMALATE
     Indication: Foetal exposure during pregnancy
     Route: 064
  253. MYOCHRYSINE [Suspect]
     Active Substance: GOLD SODIUM THIOMALATE
     Route: 064
  254. MYOCHRYSINE [Suspect]
     Active Substance: GOLD SODIUM THIOMALATE
     Route: 064
  255. MYRBETRIQ [Suspect]
     Active Substance: MIRABEGRON
     Indication: Foetal exposure during pregnancy
     Route: 064
  256. MYRBETRIQ [Suspect]
     Active Substance: MIRABEGRON
     Route: 064
  257. NAPROXEN [Suspect]
     Active Substance: NAPROXEN
     Indication: Foetal exposure during pregnancy
     Route: 064
  258. NAPROXEN [Suspect]
     Active Substance: NAPROXEN
     Route: 064
  259. NAPROXEN [Suspect]
     Active Substance: NAPROXEN
     Route: 064
  260. NAPROXEN SODIUM [Suspect]
     Active Substance: NAPROXEN SODIUM
     Indication: Foetal exposure during pregnancy
     Route: 064
  261. NICOTINAMIDE [Suspect]
     Active Substance: NIACINAMIDE
     Indication: Foetal exposure during pregnancy
     Route: 064
  262. NUCALA [Suspect]
     Active Substance: MEPOLIZUMAB
     Indication: Foetal exposure during pregnancy
     Route: 064
  263. ORENCIA [Suspect]
     Active Substance: ABATACEPT
     Indication: Foetal exposure during pregnancy
     Route: 064
  264. PERIOGARD [Suspect]
     Active Substance: CHLORHEXIDINE GLUCONATE
     Indication: Foetal exposure during pregnancy
     Route: 064
  265. PHTHALYLSULFATHIAZOLE [Suspect]
     Active Substance: PHTHALYLSULFATHIAZOLE
     Indication: Foetal exposure during pregnancy
     Route: 064
  266. PREDNISONE [Suspect]
     Active Substance: PREDNISONE
     Indication: Foetal exposure during pregnancy
     Route: 064
  267. PSEUDOEPHEDRINE [Suspect]
     Active Substance: PSEUDOEPHEDRINE
     Indication: Foetal exposure during pregnancy
     Route: 064
  268. RAMIPRIL [Suspect]
     Active Substance: RAMIPRIL
     Indication: Foetal exposure during pregnancy
     Route: 064
  269. CETIRIZINE HYDROCHLORIDE\PSEUDOEPHEDRINE HYDROCHLORIDE [Suspect]
     Active Substance: CETIRIZINE HYDROCHLORIDE\PSEUDOEPHEDRINE HYDROCHLORIDE
     Indication: Foetal exposure during pregnancy
     Route: 064
  270. CETIRIZINE HYDROCHLORIDE\PSEUDOEPHEDRINE HYDROCHLORIDE [Suspect]
     Active Substance: CETIRIZINE HYDROCHLORIDE\PSEUDOEPHEDRINE HYDROCHLORIDE
     Route: 064
  271. CETIRIZINE HYDROCHLORIDE\PSEUDOEPHEDRINE HYDROCHLORIDE [Suspect]
     Active Substance: CETIRIZINE HYDROCHLORIDE\PSEUDOEPHEDRINE HYDROCHLORIDE
     Route: 064
  272. CETIRIZINE HYDROCHLORIDE\PSEUDOEPHEDRINE HYDROCHLORIDE [Suspect]
     Active Substance: CETIRIZINE HYDROCHLORIDE\PSEUDOEPHEDRINE HYDROCHLORIDE
     Route: 064
  273. OXYCODONE TEREPHTHALATE [Suspect]
     Active Substance: OXYCODONE TEREPHTHALATE
     Indication: Foetal exposure during pregnancy
     Route: 064
  274. SIMPONI [Suspect]
     Active Substance: GOLIMUMAB
     Indication: Foetal exposure during pregnancy
     Route: 064
  275. SIMPONI [Suspect]
     Active Substance: GOLIMUMAB
     Route: 064
  276. SULFASALAZINE [Suspect]
     Active Substance: SULFASALAZINE
     Indication: Foetal exposure during pregnancy
     Route: 064
  277. SULFASALAZINE [Suspect]
     Active Substance: SULFASALAZINE
     Route: 064
  278. SULFASALAZINE [Suspect]
     Active Substance: SULFASALAZINE
     Route: 064
  279. SULFASALAZINE [Suspect]
     Active Substance: SULFASALAZINE
     Route: 064
  280. SULFASALAZINE [Suspect]
     Active Substance: SULFASALAZINE
     Route: 064
  281. SULFASALAZINE [Suspect]
     Active Substance: SULFASALAZINE
     Route: 064
  282. SULFASALAZINE [Suspect]
     Active Substance: SULFASALAZINE
     Route: 064
  283. TOPIRAMATE [Suspect]
     Active Substance: TOPIRAMATE
     Indication: Foetal exposure during pregnancy
     Route: 064
  284. TOPIRAMATE [Suspect]
     Active Substance: TOPIRAMATE
     Route: 064
  285. XELJANZ [Suspect]
     Active Substance: TOFACITINIB CITRATE
     Indication: Foetal exposure during pregnancy
     Route: 064
  286. XELJANZ [Suspect]
     Active Substance: TOFACITINIB CITRATE
     Route: 064
  287. STELARA [Suspect]
     Active Substance: USTEKINUMAB
     Indication: Foetal exposure during pregnancy
     Route: 064
  288. STELARA [Suspect]
     Active Substance: USTEKINUMAB
     Route: 064
  289. STELARA [Suspect]
     Active Substance: USTEKINUMAB
     Route: 064
  290. ZINC [Suspect]
     Active Substance: ZINC
     Indication: Foetal exposure during pregnancy
     Route: 064
  291. METFORMIN HYDROCHLORIDE [Suspect]
     Active Substance: METFORMIN HYDROCHLORIDE
     Indication: Foetal exposure during pregnancy
     Route: 065
  292. AZATHIOPRINE [Suspect]
     Active Substance: AZATHIOPRINE
     Indication: Foetal exposure during pregnancy
     Route: 064
  293. AZATHIOPRINE [Suspect]
     Active Substance: AZATHIOPRINE
     Route: 064
  294. AZATHIOPRINE [Suspect]
     Active Substance: AZATHIOPRINE
     Route: 064
  295. VITAMIN D3 [Suspect]
     Active Substance: CHOLECALCIFEROL
     Indication: Foetal exposure during pregnancy
     Route: 064
  296. ACETAMINOPHEN [Suspect]
     Active Substance: ACETAMINOPHEN
     Indication: Foetal exposure during pregnancy
     Route: 064
  297. ACETAMINOPHEN [Suspect]
     Active Substance: ACETAMINOPHEN
     Route: 064
  298. ERENUMAB-AOOE [Suspect]
     Active Substance: ERENUMAB-AOOE
     Indication: Foetal exposure during pregnancy
     Route: 064
  299. TRUXIMA [Suspect]
     Active Substance: RITUXIMAB-ABBS
     Indication: Foetal exposure during pregnancy
     Route: 064
  300. TRUXIMA [Suspect]
     Active Substance: RITUXIMAB-ABBS
     Route: 064
  301. TRUXIMA [Suspect]
     Active Substance: RITUXIMAB-ABBS
     Route: 064
  302. TRUXIMA [Suspect]
     Active Substance: RITUXIMAB-ABBS
     Route: 064
  303. TRUXIMA [Suspect]
     Active Substance: RITUXIMAB-ABBS
     Route: 064
  304. TRUXIMA [Suspect]
     Active Substance: RITUXIMAB-ABBS
     Route: 064
  305. TRUXIMA [Suspect]
     Active Substance: RITUXIMAB-ABBS
     Route: 064
  306. TRUXIMA [Suspect]
     Active Substance: RITUXIMAB-ABBS
     Route: 064
  307. DICLOFENAC EPOLAMINE [Suspect]
     Active Substance: DICLOFENAC EPOLAMINE
     Indication: Foetal exposure during pregnancy
     Route: 064
  308. DICLOFENAC EPOLAMINE [Suspect]
     Active Substance: DICLOFENAC EPOLAMINE
     Route: 064
  309. ATOMOXETINE HYDROCHLORIDE [Suspect]
     Active Substance: ATOMOXETINE HYDROCHLORIDE
     Indication: Foetal exposure during pregnancy
     Route: 064
  310. ATOMOXETINE HYDROCHLORIDE [Suspect]
     Active Substance: ATOMOXETINE HYDROCHLORIDE
     Route: 064
  311. ALENDRONATE SODIUM [Suspect]
     Active Substance: ALENDRONATE SODIUM
     Indication: Foetal exposure during pregnancy
     Route: 064
  312. ALENDRONATE SODIUM [Suspect]
     Active Substance: ALENDRONATE SODIUM
     Route: 064
  313. ALENDRONATE SODIUM [Suspect]
     Active Substance: ALENDRONATE SODIUM
     Route: 064
  314. CHOLECALCIFEROL [Suspect]
     Active Substance: CHOLECALCIFEROL
     Indication: Foetal exposure during pregnancy
     Route: 064
  315. CHOLECALCIFEROL [Suspect]
     Active Substance: CHOLECALCIFEROL
     Route: 064
  316. MEGLUMINE [Suspect]
     Active Substance: MEGLUMINE
     Indication: Foetal exposure during pregnancy
     Route: 064
  317. CELECOXIB [Suspect]
     Active Substance: CELECOXIB
     Indication: Foetal exposure during pregnancy
     Route: 064
  318. ATOMOXETINE HYDROCHLORIDE [Suspect]
     Active Substance: ATOMOXETINE HYDROCHLORIDE
     Indication: Foetal exposure during pregnancy
     Route: 064
  319. ATOMOXETINE HYDROCHLORIDE [Suspect]
     Active Substance: ATOMOXETINE HYDROCHLORIDE
     Route: 064
  320. TOPIRAMATE [Suspect]
     Active Substance: TOPIRAMATE
     Indication: Foetal exposure during pregnancy
     Route: 064
  321. GOLD SODIUM THIOMALATE [Suspect]
     Active Substance: GOLD SODIUM THIOMALATE
     Indication: Foetal exposure during pregnancy
     Route: 064
  322. ACETAMINOPHEN\TRAMADOL HYDROCHLORIDE [Suspect]
     Active Substance: ACETAMINOPHEN\TRAMADOL HYDROCHLORIDE
     Indication: Foetal exposure during pregnancy
     Route: 064
  323. ALENDRONATE SODIUM\CHOLECALCIFEROL [Suspect]
     Active Substance: ALENDRONATE SODIUM\CHOLECALCIFEROL
     Indication: Foetal exposure during pregnancy
     Route: 064
  324. ACETAMINOPHEN AND CODEINE [Suspect]
     Active Substance: ACETAMINOPHEN\CODEINE PHOSPHATE
     Indication: Foetal exposure during pregnancy
     Route: 064
  325. CETIRIZINE HYDROCHLORIDE [Suspect]
     Active Substance: CETIRIZINE HYDROCHLORIDE
     Indication: Foetal exposure during pregnancy
     Route: 064
  326. CETIRIZINE HYDROCHLORIDE [Suspect]
     Active Substance: CETIRIZINE HYDROCHLORIDE
     Route: 064
  327. CETIRIZINE HYDROCHLORIDE [Suspect]
     Active Substance: CETIRIZINE HYDROCHLORIDE
     Route: 064
  328. CETIRIZINE HYDROCHLORIDE [Suspect]
     Active Substance: CETIRIZINE HYDROCHLORIDE
     Route: 064
  329. CETIRIZINE HYDROCHLORIDE [Suspect]
     Active Substance: CETIRIZINE HYDROCHLORIDE
     Route: 064
  330. NAPROXEN [Suspect]
     Active Substance: NAPROXEN
     Indication: Foetal exposure during pregnancy
     Route: 064
  331. CHOLECALCIFEROL [Suspect]
     Active Substance: CHOLECALCIFEROL
     Indication: Foetal exposure during pregnancy
     Route: 064
  332. CHOLECALCIFEROL [Suspect]
     Active Substance: CHOLECALCIFEROL
     Route: 064
  333. PHENYLEPHRINE HYDROCHLORIDE\TROPICAMIDE [Suspect]
     Active Substance: PHENYLEPHRINE HYDROCHLORIDE\TROPICAMIDE
     Indication: Foetal exposure during pregnancy
     Route: 064
  334. PSEUDOEPHEDRINE HYDROCHLORIDE [Suspect]
     Active Substance: PSEUDOEPHEDRINE HYDROCHLORIDE
     Indication: Foetal exposure during pregnancy
     Route: 064
  335. REMICADE [Suspect]
     Active Substance: INFLIXIMAB
     Indication: Foetal exposure during pregnancy
     Route: 064
  336. REMICADE [Suspect]
     Active Substance: INFLIXIMAB
     Route: 064
  337. REMICADE [Suspect]
     Active Substance: INFLIXIMAB
     Route: 064
  338. REMICADE [Suspect]
     Active Substance: INFLIXIMAB
     Route: 064
  339. HYDROCORTISONE [Suspect]
     Active Substance: HYDROCORTISONE
     Indication: Foetal exposure during pregnancy
     Route: 064
  340. FLUMETHASONE\SALICYLIC ACID [Suspect]
     Active Substance: FLUMETHASONE\SALICYLIC ACID
     Indication: Foetal exposure during pregnancy
     Route: 064
  341. METHYLPREDNISOLONE ACETATE [Suspect]
     Active Substance: METHYLPREDNISOLONE ACETATE
     Indication: Foetal exposure during pregnancy
     Route: 064
  342. DOMPERIDONE [Suspect]
     Active Substance: DOMPERIDONE
     Indication: Product used for unknown indication
     Route: 065
  343. TOPAMAX [Suspect]
     Active Substance: TOPIRAMATE
     Indication: Exposure during pregnancy
     Route: 064
  344. TOPAMAX [Suspect]
     Active Substance: TOPIRAMATE
     Route: 064
  345. TOPAMAX [Suspect]
     Active Substance: TOPIRAMATE
     Route: 064
  346. AZATHIOPRINE SODIUM [Suspect]
     Active Substance: AZATHIOPRINE SODIUM
     Indication: Foetal exposure during pregnancy
     Route: 064
  347. COSENTYX [Concomitant]
     Active Substance: SECUKINUMAB
     Indication: Foetal exposure during pregnancy
     Route: 064

REACTIONS (2)
  - Congenital anomaly [Unknown]
  - Foetal exposure during pregnancy [Unknown]
